FAERS Safety Report 6389560-1 (Version None)
Quarter: 2009Q4

REPORT INFORMATION
  Report Type: 
  Country: None (occurrence: None)
  Receive Date: 20091003
  Receipt Date: 20090921
  Transmission Date: 20100525
  Serious: Yes (Death, Hospitalization)
  Sender: FDA-Public Use
  Company Number: DSA_41684_2009

PATIENT
  Sex: Female
  Weight: 78.4723 kg

DRUGS (14)
  1. CARDIZEM CD [Suspect]
     Dosage: 2400 MG 1X, NOT THE PRESCRIBED AMOUNT
     Dates: start: 20090507, end: 20090507
  2. FLEXERIL [Concomitant]
  3. TAZAC [Concomitant]
  4. ALCOHOL [Concomitant]
  5. SUMATRIPTAN [Concomitant]
  6. BUSPIRONE HCL [Concomitant]
  7. ZIPRASIDONE HCL [Concomitant]
  8. ESCITALOPRAM OXALATE [Concomitant]
  9. HYDROXYZINE [Concomitant]
  10. MONTELUKAST [Concomitant]
  11. LEVETIRACETAM [Concomitant]
  12. CELECOXIB [Concomitant]
  13. DIAZEPAM [Concomitant]
  14. ZOLPIDEM [Concomitant]

REACTIONS (2)
  - HYPOTENSION [None]
  - INTENTIONAL OVERDOSE [None]
